FAERS Safety Report 14502046 (Version 3)
Quarter: 2018Q2

REPORT INFORMATION
  Report Type: Report from Study
  Country: GB (occurrence: GB)
  Receive Date: 20180208
  Receipt Date: 20180404
  Transmission Date: 20180711
  Serious: Yes (Death, Life-Threatening, Hospitalization, Other)
  Sender: FDA-Public Use
  Company Number: GB-BRISTOL-MYERS SQUIBB COMPANY-BMS-2016-114397

PATIENT
  Age: 75 Year
  Sex: Male

DRUGS (2)
  1. ARANESP [Suspect]
     Active Substance: DARBEPOETIN ALFA
     Indication: PRODUCT USED FOR UNKNOWN INDICATION
     Dosage: 40 ?G, UNK
     Route: 065
  2. WARFARIN SODIUM. [Suspect]
     Active Substance: WARFARIN SODIUM
     Indication: PRODUCT USED FOR UNKNOWN INDICATION
     Route: 065

REACTIONS (7)
  - Contusion [Unknown]
  - Death [Fatal]
  - Ill-defined disorder [Unknown]
  - Myocardial infarction [Unknown]
  - Renal failure [Unknown]
  - Gallbladder disorder [Unknown]
  - Thrombectomy [Unknown]

NARRATIVE: CASE EVENT DATE: 201611
